FAERS Safety Report 8546814-8 (Version None)
Quarter: 2012Q3

REPORT INFORMATION
  Report Type: 
  Country: None (occurrence: None)
  Receive Date: 20120727
  Receipt Date: 20120207
  Transmission Date: 20120928
  Serious: No
  Sender: FDA-Public Use
  Company Number: US-ASTRAZENECA-2012SE08594

PATIENT
  Sex: Female

DRUGS (4)
  1. SEROQUEL [Suspect]
     Route: 048
  2. ADDERALL 5 [Concomitant]
     Route: 065
  3. PRILOSEC [Concomitant]
     Route: 048
  4. BUSPAR [Concomitant]
     Route: 065

REACTIONS (2)
  - DYSPHAGIA [None]
  - CHOKING SENSATION [None]
